FAERS Safety Report 8230410 (Version 2)
Quarter: 2014Q1

REPORT INFORMATION
  Report Type: Spontaneous
  Country: US (occurrence: US)
  Receive Date: 20111106
  Receipt Date: 20140102
  Transmission Date: 20141002
  Serious: Yes (Other)
  Sender: FDA-Public Use
  Company Number: US-AMGEN-USASP2011042710

PATIENT
  Age: 63 Year
  Sex: Female

DRUGS (2)
  1. ENBREL [Suspect]
     Indication: RHEUMATOID ARTHRITIS
     Dosage: 50 MG, QWK
     Route: 058
     Dates: start: 20000101
  2. CLOTRIMAZOLE [Concomitant]
     Dosage: 10 MG, UNK

REACTIONS (7)
  - Escherichia urinary tract infection [Recovered/Resolved]
  - Streptococcal urinary tract infection [Unknown]
  - Oral candidiasis [Recovered/Resolved]
  - Rheumatoid arthritis [Unknown]
  - Artificial crown procedure [Recovered/Resolved]
  - Swollen tongue [Not Recovered/Not Resolved]
  - Irritable bowel syndrome [Not Recovered/Not Resolved]
